FAERS Safety Report 9802894 (Version 1)
Quarter: 2014Q1

REPORT INFORMATION
  Report Type: Spontaneous
  Country: US (occurrence: US)
  Receive Date: 20140108
  Receipt Date: 20140108
  Transmission Date: 20141002
  Serious: No
  Sender: FDA-Public Use
  Company Number: US-GLAXOSMITHKLINE-A1043924A

PATIENT
  Age: 22 Year
  Sex: Male

DRUGS (7)
  1. POTIGA [Suspect]
     Indication: CONVULSION
     Route: 050
  2. CLOBAZAM [Concomitant]
  3. LAMOTRIGINE [Concomitant]
  4. PHENOBARBITAL [Concomitant]
  5. VALPROIC ACID [Concomitant]
  6. METOPROLOL [Concomitant]
  7. LEVOCARNITINE [Concomitant]

REACTIONS (2)
  - Drug administration error [Unknown]
  - Incorrect route of drug administration [Unknown]
